FAERS Safety Report 5105536-6 (Version None)
Quarter: 2006Q3

REPORT INFORMATION
  Report Type: 
  Country: None (occurrence: None)
  Receive Date: 20060915
  Receipt Date: 20060904
  Transmission Date: 20061208
  Serious: Yes (Death, Other)
  Sender: FDA-Public Use
  Company Number: AT-BRISTOL-MYERS SQUIBB COMPANY-13499389

PATIENT
  Age: 64 Year
  Sex: Male

DRUGS (3)
  1. CARBOPLATIN [Suspect]
     Indication: LARYNGEAL CANCER
     Dates: start: 20050215, end: 20050215
  2. TAXOTERE [Suspect]
     Indication: LARYNGEAL CANCER
     Dates: start: 20050215, end: 20050215
  3. FLUOROURACIL [Suspect]
     Indication: LARYNGEAL CANCER
     Dates: start: 20050215, end: 20050215

REACTIONS (2)
  - EPILEPSY [None]
  - MALIGNANT NEOPLASM PROGRESSION [None]
